FAERS Safety Report 4832399-6 (Version None)
Quarter: 2005Q4

REPORT INFORMATION
  Report Type: 
  Country: None (occurrence: None)
  Receive Date: 20051121
  Receipt Date: 20051114
  Transmission Date: 20060501
  Serious: Yes (Hospitalization)
  Sender: FDA-Public Use
  Company Number: 2005UW17211

PATIENT
  Age: 88 Year
  Sex: Female
  Weight: 75 kg

DRUGS (11)
  1. TAMOXIFEN [Suspect]
     Indication: BREAST CANCER
     Route: 048
     Dates: start: 20030120
  2. ERYTHROPOIETIN/PLACEBO CODE NOT BROKEN [Suspect]
     Indication: ANAEMIA OF CHRONIC DISEASE
     Route: 058
     Dates: start: 20050620, end: 20050718
  3. MIACALCIN [Concomitant]
     Indication: PROPHYLAXIS
     Dates: start: 20030101
  4. NIFEREX [Concomitant]
     Indication: ANAEMIA
     Dates: start: 20050418
  5. ALLEGRA [Concomitant]
     Dates: start: 20050617
  6. ECOTRIN [Concomitant]
     Indication: PROPHYLAXIS
     Route: 048
     Dates: start: 19990101
  7. OS-CAL [Concomitant]
     Indication: PROPHYLAXIS
     Dates: start: 19990101
  8. CENTRUM SILVER [Concomitant]
     Indication: PROPHYLAXIS
  9. LISINOPRIL AND HYDROCHLOROTHIAZIDE [Concomitant]
     Indication: CORONARY ARTERY DISEASE
     Dosage: 20/25 MG
     Dates: start: 19940201
  10. MOBIC [Concomitant]
     Indication: ARTHRITIS
     Dates: start: 20030101
  11. LEVOXYL [Concomitant]
     Indication: HYPOTHYROIDISM
     Dates: start: 19980101

REACTIONS (6)
  - ATRIAL TACHYCARDIA [None]
  - CHEST PAIN [None]
  - DEEP VEIN THROMBOSIS [None]
  - DYSPNOEA [None]
  - FALL [None]
  - HIP FRACTURE [None]
